FAERS Safety Report 5052732-2 (Version None)
Quarter: 2006Q2

REPORT INFORMATION
  Report Type: 
  Country: None (occurrence: None)
  Receive Date: 20060614
  Receipt Date: 20060307
  Transmission Date: 20061013
  Serious: Yes (Other)
  Sender: FDA-Public Use
  Company Number: 439543

PATIENT
  Age: 66 Year
  Sex: Female
  Weight: 108.9 kg

DRUGS (3)
  1. BONIVA [Suspect]
     Indication: DRUG USE FOR UNKNOWN INDICATION
     Dates: start: 20060301
  2. CALCIUM (CALCIUM) [Concomitant]
  3. ZOCOR [Concomitant]

REACTIONS (13)
  - ABDOMINAL DISCOMFORT [None]
  - ANGINA PECTORIS [None]
  - ANXIETY [None]
  - BLOOD PRESSURE INCREASED [None]
  - DEPRESSED MOOD [None]
  - DIARRHOEA [None]
  - DYSPHAGIA [None]
  - FATIGUE [None]
  - HEADACHE [None]
  - NAUSEA [None]
  - PAIN IN EXTREMITY [None]
  - SHOULDER PAIN [None]
  - TEARFULNESS [None]
